FAERS Safety Report 5723448-1 (Version None)
Quarter: 2008Q2

REPORT INFORMATION
  Report Type: 
  Country: None (occurrence: None)
  Receive Date: 20080425
  Receipt Date: 20080311
  Transmission Date: 20081010
  Serious: Yes (Hospitalization)
  Sender: FDA-Public Use
  Company Number: 805#1#2008-00002

PATIENT
  Age: 88 Year
  Sex: Female

DRUGS (6)
  1. ALPROSTADIL [Suspect]
     Indication: ARTERIOSCLEROSIS OBLITERANS
     Dosage: 40 MCG INTRAVENOUS DRIP
     Route: 041
     Dates: start: 20080222, end: 20080223
  2. ALPROSTADIL [Suspect]
     Indication: ARTERIOSCLEROSIS OBLITERANS
     Dosage: 40 MCG INTRAVENOUS DRIP
     Route: 041
     Dates: start: 20080225, end: 20080228
  3. DISOPYRAMIDE [Concomitant]
  4. VALSARTAN [Concomitant]
  5. CLOPIDOGREL [Concomitant]
  6. MECOBALAMIN [Concomitant]

REACTIONS (6)
  - ASTHMA [None]
  - ATRIAL FIBRILLATION [None]
  - CARDIAC FAILURE [None]
  - PULMONARY OEDEMA [None]
  - PYREXIA [None]
  - WHEELCHAIR USER [None]
